FAERS Safety Report 4837913-2 (Version None)
Quarter: 2005Q4

REPORT INFORMATION
  Report Type: 
  Country: None (occurrence: None)
  Receive Date: 20051123
  Receipt Date: 20051114
  Transmission Date: 20060501
  Serious: Yes (Hospitalization, Other)
  Sender: FDA-Public Use
  Company Number: 2005138375

PATIENT
  Sex: Female

DRUGS (2)
  1. AROMASIN [Suspect]
     Indication: BREAST CANCER
     Dosage: 25 MG (25 MG, 1 IN 1 D), ORAL
     Route: 048
     Dates: start: 20050523, end: 20050729
  2. AUGMENTIN '125' [Concomitant]

REACTIONS (8)
  - DEAFNESS [None]
  - DEAFNESS NEUROSENSORY [None]
  - ERYSIPELAS [None]
  - FEELING DRUNK [None]
  - MENTAL DISORDER [None]
  - METASTASES TO CENTRAL NERVOUS SYSTEM [None]
  - OTOTOXICITY [None]
  - VERTIGO [None]
